FAERS Safety Report 11048913 (Version 1)
Quarter: 2015Q2

REPORT INFORMATION
  Report Type: Spontaneous
  Country: US (occurrence: US)
  Receive Date: 20150420
  Receipt Date: 20150420
  Transmission Date: 20150821
  Serious: Yes (Hospitalization, Other)
  Sender: FDA-Public Use
  Company Number: PHHY2015US045760

PATIENT
  Age: 48 Year
  Sex: Male

DRUGS (6)
  1. ESCITALOPRAM [Suspect]
     Active Substance: ESCITALOPRAM OXALATE
     Indication: SCHIZOAFFECTIVE DISORDER
     Route: 065
  2. QUETIAPINE [Suspect]
     Active Substance: QUETIAPINE
     Indication: ANXIETY
  3. ESCITALOPRAM [Suspect]
     Active Substance: ESCITALOPRAM OXALATE
     Indication: ANXIETY
  4. QUETIAPINE [Suspect]
     Active Substance: QUETIAPINE
     Indication: SCHIZOAFFECTIVE DISORDER
     Route: 065
  5. CLOZAPIN HEXAL [Suspect]
     Active Substance: CLOZAPINE
     Indication: SCHIZOAFFECTIVE DISORDER
     Dosage: UNK
     Route: 065
  6. CLOZAPIN HEXAL [Suspect]
     Active Substance: CLOZAPINE
     Indication: ANXIETY

REACTIONS (9)
  - Mental disorder [Recovered/Resolved]
  - Verbigeration [Recovered/Resolved]
  - Corneal reflex decreased [Recovered/Resolved]
  - Seizure [Recovered/Resolved]
  - Pyrexia [Unknown]
  - Catatonia [Recovered/Resolved]
  - Negativism [Recovered/Resolved]
  - Embolic stroke [Unknown]
  - Muscle rigidity [Recovered/Resolved]
